FAERS Safety Report 19280007 (Version 5)
Quarter: 2021Q4

REPORT INFORMATION
  Report Type: Spontaneous
  Country: JP (occurrence: JP)
  Receive Date: 20210520
  Receipt Date: 20211001
  Transmission Date: 20220304
  Serious: Yes (Other)
  Sender: FDA-Public Use
  Company Number: JP-UNITED THERAPEUTICS-UNT-2019-018881

PATIENT
  Age: 9 Month
  Sex: Male
  Weight: 7 kg

DRUGS (46)
  1. REMODULIN [Suspect]
     Active Substance: TREPROSTINIL
     Indication: Pulmonary arterial hypertension
     Dosage: UNK, CONTINUING (TARGET DOSE 110-120 NG/KG/MIN)
     Route: 041
     Dates: start: 20190221
  2. REMODULIN [Suspect]
     Active Substance: TREPROSTINIL
     Dosage: 0.146 ?G/KG , CONTINUING
     Route: 041
     Dates: start: 2019
  3. REMODULIN [Suspect]
     Active Substance: TREPROSTINIL
     Dosage: 0.147 ?G/KG , CONTINUING
     Route: 041
     Dates: start: 2019
  4. REMODULIN [Suspect]
     Active Substance: TREPROSTINIL
     Dosage: 0.158 ?G/KG , CONTINUING
     Route: 041
     Dates: start: 2019
  5. REMODULIN [Suspect]
     Active Substance: TREPROSTINIL
     Dosage: 0.1 ?G/KG , CONTINUING
     Route: 041
     Dates: start: 2019
  6. REMODULIN [Suspect]
     Active Substance: TREPROSTINIL
     Dosage: 0.143 ?G/KG , CONTINUING
     Route: 041
     Dates: start: 201906, end: 20191123
  7. REMODULIN [Suspect]
     Active Substance: TREPROSTINIL
     Indication: Pulmonary arterial hypertension
     Dosage: UNK, CONTINUING
     Route: 058
     Dates: start: 20191119
  8. REMODULIN [Suspect]
     Active Substance: TREPROSTINIL
     Dosage: 0.125 ?G/KG, CONTINUING
     Route: 058
     Dates: start: 201911, end: 20191122
  9. REMODULIN [Suspect]
     Active Substance: TREPROSTINIL
     Dosage: 0.0972 ?G/KG, CONTINUING
     Route: 058
     Dates: start: 20191122, end: 20210606
  10. PIMOBENDAN [Concomitant]
     Active Substance: PIMOBENDAN
     Indication: Pulmonary arterial hypertension
     Dosage: 0.8 MG, QD (PER DAY)
     Route: 048
     Dates: start: 201902
  11. OPSUMIT [Concomitant]
     Active Substance: MACITENTAN
     Indication: Pulmonary arterial hypertension
     Dosage: 1.5 MG, QD (PER DAY)
     Route: 048
     Dates: start: 201812
  12. ADCIRCA [Concomitant]
     Active Substance: TADALAFIL
     Indication: Pulmonary arterial hypertension
     Dosage: 15 MG, QD (PER DAY)
     Route: 048
     Dates: start: 201809
  13. NITRIC OXIDE [Concomitant]
     Active Substance: NITRIC OXIDE
     Indication: Pulmonary arterial hypertension
     Dosage: UNK
     Route: 065
     Dates: start: 201811
  14. SOLDEM 3A [Concomitant]
     Active Substance: CARBOHYDRATES\POTASSIUM CHLORIDE\SODIUM CHLORIDE\SODIUM LACTATE
     Indication: Product used for unknown indication
     Dosage: UNK (MAINTENANCE INFUSION)
     Route: 065
  15. ISOTONIC SODIUM CHLORIDE SOLUTION [Concomitant]
     Active Substance: SODIUM CHLORIDE
     Indication: Product used for unknown indication
     Dosage: UNK , CONTINUING
     Route: 041
  16. FENTANYL [Concomitant]
     Active Substance: FENTANYL
     Indication: Pulmonary arterial hypertension
     Dosage: UNK
     Route: 065
     Dates: end: 20190404
  17. FENTANYL [Concomitant]
     Active Substance: FENTANYL
     Dosage: UNK
     Route: 065
     Dates: start: 20190702, end: 20190704
  18. MIDAZOLAM [Concomitant]
     Active Substance: MIDAZOLAM
     Indication: Pulmonary arterial hypertension
     Dosage: UNK
     Route: 065
     Dates: end: 20190406
  19. MIDAZOLAM [Concomitant]
     Active Substance: MIDAZOLAM
     Dosage: UNK
     Route: 065
     Dates: start: 20190702, end: 20190703
  20. BIO-THREE [Concomitant]
     Active Substance: HERBALS
     Indication: Gastrointestinal disorder
     Dosage: UNK
     Route: 048
  21. PREDNISOLONE [Concomitant]
     Active Substance: PREDNISOLONE
     Indication: Pulmonary arterial hypertension
     Dosage: UNK
     Route: 048
     Dates: end: 20190523
  22. PREDNISOLONE [Concomitant]
     Active Substance: PREDNISOLONE
     Dosage: UNK
     Route: 048
     Dates: start: 20190702, end: 20190725
  23. FAMOTIDINE [Concomitant]
     Active Substance: FAMOTIDINE
     Indication: Steroid therapy
     Dosage: UNK
     Route: 048
     Dates: end: 20190523
  24. XYZAL [Concomitant]
     Active Substance: LEVOCETIRIZINE DIHYDROCHLORIDE
     Indication: Product used for unknown indication
     Dosage: UNK
     Route: 048
     Dates: end: 20190912
  25. Incremin [Concomitant]
     Indication: Product used for unknown indication
     Dosage: UNK
     Route: 048
     Dates: end: 20190926
  26. ZINC [Concomitant]
     Active Substance: ZINC
     Indication: Product used for unknown indication
     Dosage: UNK
     Route: 048
     Dates: end: 20190317
  27. TRICLOFOS SODIUM [Concomitant]
     Active Substance: TRICLOFOS SODIUM
     Indication: Sleep disorder
     Dosage: UNK
     Route: 048
     Dates: end: 20190818
  28. HYDROXYZINE HYDROCHLORIDE [Concomitant]
     Active Substance: HYDROXYZINE HYDROCHLORIDE
     Indication: Product used for unknown indication
     Dosage: UNK
     Route: 048
     Dates: end: 20190317
  29. VECURONIUM [Concomitant]
     Active Substance: VECURONIUM BROMIDE
     Indication: Tracheostomy
     Dosage: UNK
     Route: 065
     Dates: start: 20190318, end: 20190325
  30. DOPAMINE HYDROCHLORIDE [Concomitant]
     Active Substance: DOPAMINE HYDROCHLORIDE
     Indication: Tracheostomy
     Dosage: UNK
     Route: 065
     Dates: start: 20190318, end: 20190319
  31. DOBUTREX [Concomitant]
     Active Substance: DOBUTAMINE HYDROCHLORIDE
     Indication: Tracheostomy
     Dosage: UNK
     Route: 065
     Dates: start: 20190318, end: 20190319
  32. Solacet d [Concomitant]
     Indication: Product used for unknown indication
     Dosage: UNK UNK, CONTINUING
     Route: 041
     Dates: start: 20190318
  33. AMPICILLIN SODIUM\SULBACTAM SODIUM [Concomitant]
     Active Substance: AMPICILLIN SODIUM\SULBACTAM SODIUM
     Indication: Antibiotic prophylaxis
     Dosage: UNK
     Route: 065
     Dates: start: 20190318, end: 20190320
  34. AMPICILLIN SODIUM\SULBACTAM SODIUM [Concomitant]
     Active Substance: AMPICILLIN SODIUM\SULBACTAM SODIUM
     Dosage: UNK
     Route: 065
     Dates: start: 20190702, end: 20190704
  35. AMPICILLIN SODIUM\SULBACTAM SODIUM [Concomitant]
     Active Substance: AMPICILLIN SODIUM\SULBACTAM SODIUM
     Dosage: UNK
     Route: 065
     Dates: start: 20190902
  36. PRECEDEX [Concomitant]
     Active Substance: DEXMEDETOMIDINE HYDROCHLORIDE
     Indication: Tracheostomy
     Dosage: UNK
     Route: 065
     Dates: start: 20190325, end: 20190407
  37. PREDONINE [Concomitant]
     Active Substance: PREDNISOLONE
     Indication: Product used for unknown indication
     Dosage: UNK
     Route: 065
     Dates: start: 20190702, end: 20190705
  38. TEICOPLANIN [Concomitant]
     Active Substance: TEICOPLANIN
     Indication: Catheter management
     Dosage: UNK
     Route: 065
     Dates: start: 20190701, end: 20190704
  39. TEICOPLANIN [Concomitant]
     Active Substance: TEICOPLANIN
     Dosage: UNK
     Route: 065
     Dates: start: 20190901, end: 20190903
  40. ATARAX [Concomitant]
     Active Substance: HYDROXYZINE HYDROCHLORIDE
     Indication: Product used for unknown indication
     Dosage: UNK
     Route: 065
     Dates: start: 20190702, end: 20190704
  41. Bimmugen [Concomitant]
     Indication: Prophylaxis
     Dosage: UNK
     Route: 065
     Dates: start: 20190716
  42. ACTHIB [Concomitant]
     Active Substance: HAEMOPHILUS B CONJUGATE VACCINE (TETANUS TOXOID CONJUGATE)\HAEMOPHILUS INFLUENZAE TYPE B STRAIN 1482
     Indication: Prophylaxis
     Dosage: UNK
     Route: 065
     Dates: start: 20190716
  43. PREVENAR [Concomitant]
     Active Substance: PNEUMOCOCCAL 7-VALENT CONJUGATE VACCINE (DIPHTHERIA CRM197 PROTEIN)
     Indication: Prophylaxis
     Dosage: UNK
     Route: 065
     Dates: start: 20190716
  44. Squarekids [Concomitant]
     Indication: Prophylaxis
     Dosage: UNK
     Route: 065
     Dates: start: 20190716
  45. Varicella vaccine live attenuated [Concomitant]
     Indication: Prophylaxis
     Dosage: UNK
     Route: 065
     Dates: start: 20190730
  46. Mearubik [Concomitant]
     Indication: Prophylaxis
     Dosage: UNK
     Route: 065
     Dates: start: 20190730

REACTIONS (20)
  - Vascular device infection [Recovered/Resolved]
  - Vascular device infection [Recovered/Resolved]
  - Respiratory tract infection [Recovered/Resolved]
  - Respiratory tract infection [Recovered/Resolved]
  - Respiratory tract infection [Recovered/Resolved]
  - Staphylococcal bacteraemia [Recovered/Resolved]
  - Subclavian vein occlusion [Unknown]
  - Device breakage [Unknown]
  - Injection site swelling [Unknown]
  - Injection site erythema [Recovering/Resolving]
  - Injection site pain [Recovering/Resolving]
  - Injection site infection [Unknown]
  - Injection site pruritus [Unknown]
  - Injection site pruritus [Unknown]
  - Peripheral venous disease [Unknown]
  - Injection site discharge [Unknown]
  - Injection site inflammation [Unknown]
  - Injection site induration [Unknown]
  - Injection site reaction [Unknown]
  - Unintentional medical device removal [Unknown]

NARRATIVE: CASE EVENT DATE: 20190101
